FAERS Safety Report 24969019 (Version 1)
Quarter: 2025Q1

REPORT INFORMATION
  Report Type: Spontaneous
  Country: US (occurrence: US)
  Receive Date: 20250214
  Receipt Date: 20250214
  Transmission Date: 20250409
  Serious: No
  Sender: Haleon PLC
  Company Number: US-HALEON-2228149

PATIENT
  Age: 16 Month
  Sex: Male

DRUGS (1)
  1. CHILDRENS ADVIL [Suspect]
     Active Substance: IBUPROFEN
     Indication: Product used for unknown indication

REACTIONS (2)
  - Accidental exposure to product [Unknown]
  - Product use issue [Unknown]
